FAERS Safety Report 15167180 (Version 1)
Quarter: 2018Q3

REPORT INFORMATION
  Report Type: Spontaneous
  Country: US (occurrence: US)
  Receive Date: 20180621
  Receipt Date: 20180621
  Transmission Date: 20181010
  Serious: No
  Sender: FDA-Public Use
  Company Number: None

PATIENT
  Age: 43 Year
  Sex: Female
  Weight: 93.15 kg

DRUGS (7)
  1. EMOQUETTE 0.15/0.03MG [Concomitant]
     Dates: start: 20170824
  2. LISINOPRIL. [Concomitant]
     Active Substance: LISINOPRIL
     Dates: start: 20170824
  3. SERTRALINE [Suspect]
     Active Substance: SERTRALINE HYDROCHLORIDE
     Indication: GENERALISED ANXIETY DISORDER
     Route: 048
     Dates: start: 20180118, end: 20180308
  4. ATORVASTATIN 20MG [Concomitant]
     Active Substance: ATORVASTATIN
     Dates: start: 20170824
  5. CLONAZEPAM 0.5MG [Concomitant]
     Active Substance: CLONAZEPAM
     Dates: start: 20180308
  6. AMLODIPINE [Concomitant]
     Active Substance: AMLODIPINE BESYLATE
     Dates: start: 20170824
  7. METFORMIN 500MG [Concomitant]
     Active Substance: METFORMIN HYDROCHLORIDE
     Dates: start: 20170824

REACTIONS (2)
  - Contusion [None]
  - Petechiae [None]

NARRATIVE: CASE EVENT DATE: 20180308
